FAERS Safety Report 5564340-5 (Version None)
Quarter: 2007Q4

REPORT INFORMATION
  Report Type: 
  Country: None (occurrence: None)
  Receive Date: 20071218
  Receipt Date: 20071214
  Transmission Date: 20080405
  Serious: Yes (Life-Threatening)
  Sender: FDA-Public Use
  Company Number: PHBS2007BE20458

PATIENT
  Age: 91 Year

DRUGS (7)
  1. PANTOPRAZOLE SODIUM [Suspect]
     Route: 065
  2. METOPROLOL [Suspect]
     Route: 065
  3. AMIODARONE HCL [Suspect]
     Route: 065
  4. LISINOPRIL [Suspect]
     Route: 065
  5. FUROSEMIDE [Suspect]
     Route: 065
  6. LORMETAZEPAM [Suspect]
     Route: 065
  7. LEVOTHYROXINE SODIUM [Suspect]
     Route: 065

REACTIONS (4)
  - HYPERTENSION [None]
  - HYPOKALAEMIA [None]
  - SYNCOPE [None]
  - TORSADE DE POINTES [None]
